FAERS Safety Report 7475807-7 (Version None)
Quarter: 2011Q2

REPORT INFORMATION
  Report Type: 
  Country: None (occurrence: None)
  Receive Date: 20110504
  Receipt Date: 20110422
  Transmission Date: 20111010
  Serious: Yes (Death)
  Sender: FDA-Public Use
  Company Number: 031479

PATIENT
  Age: 62 Year
  Sex: Male

DRUGS (4)
  1. NEUPRO [Suspect]
     Indication: PARKINSON'S DISEASE
     Dosage: 12 MG TRANSDERMAL
     Route: 062
     Dates: start: 20110414, end: 20110401
  2. SINEMET [Concomitant]
  3. STALEVO 100 [Concomitant]
  4. AZILECT [Concomitant]

REACTIONS (2)
  - FEELING ABNORMAL [None]
  - CARDIAC DISORDER [None]
